FAERS Safety Report 5788772-5 (Version None)
Quarter: 2008Q2

REPORT INFORMATION
  Report Type: 
  Country: None (occurrence: None)
  Receive Date: 20080626
  Receipt Date: 20080619
  Transmission Date: 20081010
  Serious: Yes (Death)
  Sender: FDA-Public Use
  Company Number: US-WATSON-2008-01469

PATIENT
  Sex: Male

DRUGS (5)
  1. DIAZEPAM (WATSON LABORATORIES) [Suspect]
     Indication: ANXIETY
     Dosage: 10 MG, TID
     Route: 048
     Dates: start: 20080124, end: 20080214
  2. NORCO 7.5/325 (WATSON LABORATORIES) [Suspect]
     Indication: PAIN
     Dosage: 7.5 MG, TID
     Route: 048
     Dates: start: 20080131, end: 20080214
  3. METHADON HCL TAB [Suspect]
     Indication: DRUG USE FOR UNKNOWN INDICATION
     Dosage: UNK
     Route: 065
  4. OPANA ER [Suspect]
     Indication: PAIN
     Dosage: 20 MG, DAILY
     Route: 048
     Dates: start: 20080205, end: 20080214
  5. AMITRIPTYLINE HCL [Concomitant]
     Indication: DEPRESSION
     Dosage: 200 MG, QHS
     Route: 048
     Dates: start: 20080128, end: 20080214

REACTIONS (1)
  - DRUG TOXICITY [None]
